FAERS Safety Report 5284297-4 (Version None)
Quarter: 2007Q1

REPORT INFORMATION
  Report Type: 
  Country: None (occurrence: None)
  Receive Date: 20070321
  Receipt Date: 20070307
  Transmission Date: 20070707
  Serious: Yes (Other)
  Sender: FDA-Public Use
  Company Number: THYM-11348

PATIENT
  Age: 62 Year
  Sex: Male
  Weight: 75 kg

DRUGS (12)
  1. THYMOGLOBULIN [Suspect]
     Indication: LIVER TRANSPLANT
     Dosage: 105 MG QD; IV
     Route: 042
     Dates: start: 20061103, end: 20061103
  2. THYMOGLOBULIN [Suspect]
     Indication: LIVER TRANSPLANT
     Dosage: 52.5 MG QD; IV
     Route: 042
     Dates: start: 20061104, end: 20061106
  3. THYMOGLOBULIN [Suspect]
     Indication: LIVER TRANSPLANT
     Dosage: 57 MG QD; IV
     Route: 042
     Dates: start: 20061107, end: 20061109
  4. FLUCONAZOLE [Concomitant]
  5. GANCICLOVIR [Concomitant]
  6. BACTRIM [Concomitant]
  7. TYLENOL [Concomitant]
  8. BENADRYL [Concomitant]
  9. METOPROLOL SUCCINATE [Concomitant]
  10. NEUMEGA [Concomitant]
  11. PREDNISONE TAB [Concomitant]
  12. TACROLIMUS [Concomitant]

REACTIONS (6)
  - ABDOMINAL PAIN [None]
  - GASTROINTESTINAL DISORDER [None]
  - HAEMOGLOBIN DECREASED [None]
  - HIATUS HERNIA [None]
  - MELAENA [None]
  - PLATELET COUNT DECREASED [None]
